FAERS Safety Report 7069373-8 (Version None)
Quarter: 2010Q4

REPORT INFORMATION
  Report Type: 
  Country: None (occurrence: None)
  Receive Date: 20101028
  Receipt Date: 20101027
  Transmission Date: 20110411
  Serious: Yes (Death, Other)
  Sender: FDA-Public Use
  Company Number: FR-ABBOTT-10P-056-0667904-00

PATIENT
  Sex: Male

DRUGS (2)
  1. HUMIRA [Suspect]
     Indication: PSORIASIS
     Route: 058
     Dates: start: 20040101
  2. HUMIRA [Suspect]
     Indication: MUSCULOSKELETAL PAIN

REACTIONS (1)
  - OESOPHAGEAL CARCINOMA [None]
